FAERS Safety Report 7394796-7 (Version None)
Quarter: 2011Q2

REPORT INFORMATION
  Report Type: 
  Country: None (occurrence: None)
  Receive Date: 20110405
  Receipt Date: 20110328
  Transmission Date: 20111010
  Serious: Yes (Hospitalization, Congenital Anomaly)
  Sender: FDA-Public Use
  Company Number: A0680648A

PATIENT
  Sex: Female
  Weight: 3.7 kg

DRUGS (4)
  1. ATIVAN [Concomitant]
     Dates: start: 20060119
  2. PAXIL [Suspect]
     Indication: ANXIETY
     Dosage: 40MG UNKNOWN
     Route: 064
     Dates: end: 20060119
  3. KLONOPIN [Concomitant]
     Dates: end: 20060119
  4. PRENATAL VITAMINS [Concomitant]
     Dates: start: 20060119

REACTIONS (6)
  - PULMONARY VALVE STENOSIS [None]
  - DRUG EXPOSURE DURING PREGNANCY [None]
  - FALLOT'S TETRALOGY [None]
  - VENTRICULAR SEPTAL DEFECT [None]
  - FOETAL CYSTIC HYGROMA [None]
  - DYSMORPHISM [None]
